FAERS Safety Report 23800936 (Version 1)
Quarter: 2024Q2

REPORT INFORMATION
  Report Type: Spontaneous
  Country: GB (occurrence: GB)
  Receive Date: 20240430
  Receipt Date: 20240430
  Transmission Date: 20240716
  Serious: Yes (Life-Threatening, Hospitalization)
  Sender: FDA-Public Use
  Company Number: None

PATIENT
  Age: 89 Year
  Sex: Male

DRUGS (10)
  1. WARFARIN [Suspect]
     Active Substance: WARFARIN
     Dosage: TAKE AS PRESCRIBED IN ANTICOAGULANT TREATMENT BOOK- PT TAKES 6MG DAILY EVERY DAY OF THE WEEK AS P...
     Route: 065
  2. WARFARIN [Suspect]
     Active Substance: WARFARIN
     Dosage: TAKE AS PRESCRIBED IN ANTICOAGULANT TREATMENT BOOK
     Route: 065
  3. ACETAMINOPHEN [Concomitant]
     Active Substance: ACETAMINOPHEN
     Dosage: 1 OR 2 FOUR TIMES DAILY
  4. RAMIPRIL [Concomitant]
     Active Substance: RAMIPRIL
  5. LORATADINE [Concomitant]
     Active Substance: LORATADINE
  6. BENDROFLUMETHIAZIDE [Concomitant]
     Active Substance: BENDROFLUMETHIAZIDE
     Dosage: EACH MORNING,
  7. DESLORATADINE [Concomitant]
     Active Substance: DESLORATADINE
  8. AMLODIPINE [Concomitant]
     Active Substance: AMLODIPINE BESYLATE
  9. BISOPROLOL [Concomitant]
     Active Substance: BISOPROLOL\BISOPROLOL FUMARATE
  10. SIMVASTATIN [Concomitant]
     Active Substance: SIMVASTATIN
     Dosage: TAKE ONE AT NIGHT DOSE REDUCTION AS PER GUIDELINES,

REACTIONS (1)
  - Cerebrovascular accident [Recovered/Resolved]
